FAERS Safety Report 5473142-X (Version None)
Quarter: 2007Q3

REPORT INFORMATION
  Report Type: 
  Country: None (occurrence: None)
  Receive Date: 20070927
  Receipt Date: 20070919
  Transmission Date: 20080115
  Serious: Yes (Disabling)
  Sender: FDA-Public Use
  Company Number: 2007PV000037

PATIENT
  Age: 56 Year
  Sex: Female

DRUGS (3)
  1. CYTARABINE [Suspect]
     Indication: METASTASES TO MENINGES
     Dosage: 50 MG; QM; INTH
     Route: 037
     Dates: start: 20060201, end: 20060401
  2. TEMOZOLOMIDE [Concomitant]
  3. CARBOPLATIN [Concomitant]

REACTIONS (3)
  - HYDROCEPHALUS [None]
  - LEUKOENCEPHALOPATHY [None]
  - METASTASES TO CENTRAL NERVOUS SYSTEM [None]
